FAERS Safety Report 12280717 (Version 1)
Quarter: 2016Q2

REPORT INFORMATION
  Report Type: Spontaneous
  Country: DE (occurrence: DE)
  Receive Date: 20160419
  Receipt Date: 20160419
  Transmission Date: 20160815
  Serious: Yes (Other)
  Sender: FDA-Public Use
  Company Number: DE-AUROBINDO-AUR-APL-2016-04523

PATIENT
  Age: 74 Year
  Sex: Female

DRUGS (11)
  1. FOSTER                             /00500401/ [Suspect]
     Active Substance: PIROXICAM
     Dosage: 2 DF, ONCE A DAY
     Route: 065
     Dates: start: 2015
  2. ASPIRIN. [Concomitant]
     Active Substance: ASPIRIN
     Indication: PRODUCT USED FOR UNKNOWN INDICATION
     Dosage: 1 DF, DAILY
     Route: 065
  3. MONTELUKAST [Suspect]
     Active Substance: MONTELUKAST SODIUM
     Indication: PRODUCT USED FOR UNKNOWN INDICATION
     Dosage: 1 DF, DAILY
     Route: 065
     Dates: start: 2012
  4. PROSTAGUTT FORTE [Concomitant]
     Active Substance: HERBALS
     Indication: PRODUCT USED FOR UNKNOWN INDICATION
     Route: 065
  5. DEKRISTOL [Suspect]
     Active Substance: CHOLECALCIFEROL
     Indication: PRODUCT USED FOR UNKNOWN INDICATION
     Route: 065
  6. VITAMIN B12 [Concomitant]
     Active Substance: CYANOCOBALAMIN
     Indication: PRODUCT USED FOR UNKNOWN INDICATION
     Dosage: 2 DF, UNK
     Route: 065
  7. RAMIPRIL 2.5MG [Suspect]
     Active Substance: RAMIPRIL
     Dosage: 5 MG, DAILY
     Dates: start: 201511
  8. SELEN LOGES [Concomitant]
     Indication: PRODUCT USED FOR UNKNOWN INDICATION
     Route: 065
  9. ZINKOROT [Concomitant]
     Active Substance: ZINC OROTATE
     Indication: PRODUCT USED FOR UNKNOWN INDICATION
     Route: 065
  10. RAMIPRIL 2.5MG [Suspect]
     Active Substance: RAMIPRIL
     Indication: HYPERTENSION
     Dosage: 2.5 MG, DAILY
     Route: 065
     Dates: start: 2014
  11. FOSTER                             /00500401/ [Suspect]
     Active Substance: PIROXICAM
     Indication: PRODUCT USED FOR UNKNOWN INDICATION
     Dosage: 1 DF, ONCE A DAY
     Route: 065
     Dates: start: 2011, end: 2015

REACTIONS (21)
  - Hypoaesthesia [Unknown]
  - Feeling cold [Recovered/Resolved]
  - Incontinence [Unknown]
  - Nasopharyngitis [Unknown]
  - Arthropathy [Unknown]
  - Sleep disorder [Unknown]
  - Paraesthesia [Unknown]
  - Fatigue [Unknown]
  - Agitation [Unknown]
  - Abdominal distension [Unknown]
  - Nervousness [Unknown]
  - Micturition disorder [Unknown]
  - Thirst [Unknown]
  - Premature ageing [Unknown]
  - Amnesia [Unknown]
  - Dyspnoea [Unknown]
  - Abdominal pain [Unknown]
  - Confusional state [Unknown]
  - Chills [Unknown]
  - Weight bearing difficulty [Unknown]
  - Exercise tolerance decreased [Unknown]

NARRATIVE: CASE EVENT DATE: 2015
